FAERS Safety Report 9149294 (Version 2)
Quarter: 2013Q2

REPORT INFORMATION
  Report Type: Spontaneous
  Country: US (occurrence: US)
  Receive Date: 20130308
  Receipt Date: 20130430
  Transmission Date: 20140414
  Serious: Yes (Other)
  Sender: FDA-Public Use
  Company Number: US-PFIZER INC-2013078664

PATIENT
  Age: 49 Year
  Sex: Female
  Weight: 62.5 kg

DRUGS (26)
  1. DOXORUBICIN HCL [Suspect]
     Indication: BREAST CANCER
     Dosage: 104MG (60MG/M2) 4 CYCLES
     Route: 042
     Dates: start: 20130104
  2. DOXORUBICIN HCL [Suspect]
     Indication: BREAST CANCER FEMALE
     Dosage: 104 MG, 1X/DAY (ONCE PUSH OVER 10 MINUTES)
     Route: 042
     Dates: start: 20130107
  3. DOXORUBICIN HCL [Suspect]
     Indication: METASTASES TO LYMPH NODES
     Dosage: 104 MG, 1X/DAY ONCE PUSH OVER 10 MINUTES
     Route: 042
     Dates: start: 20130219
  4. PACLITAXEL [Concomitant]
     Dosage: UNK
  5. ONDANSETRON HYDROCHLORIDE [Concomitant]
     Dosage: 18 MG, ONCE (AC DOSE DENSE CYCLE 1 DAY 1
     Route: 042
     Dates: start: 20130107
  6. ONDANSETRON HYDROCHLORIDE [Concomitant]
     Dosage: 16 MG, ONCE(AC DOSE DENSE - CYCLE 4, DAY 1)
     Route: 042
     Dates: start: 20130219
  7. ACETAMINOPHEN [Concomitant]
     Dosage: 650 MG, (AC DOSE DENSE - CYCLE1, DAY 1)
     Route: 048
     Dates: start: 20130107
  8. ACETAMINOPHEN [Concomitant]
     Dosage: 650 MG,(AC DOSE DENSE - CYCLE -4, DAY - 1)
     Route: 042
     Dates: start: 20130219
  9. DEXAMETHASONE SODIUM PHOSPHATE [Concomitant]
     Dosage: 10 MG, ONCE (AC DOSE DENSE CYCLE1, DAY1)
     Route: 042
     Dates: start: 20130107
  10. DEXAMETHASONE SODIUM PHOSPHATE [Concomitant]
     Dosage: 10 MG, ONCE (INTRAVENOUS ONCE PUSH OVER 20 MINUTES)
     Route: 042
     Dates: start: 20130219
  11. ATIVAN [Concomitant]
     Dosage: 0.5 MG, ONCE (AC DOSE DENSE - CYCLE - 1 DAY )
     Route: 048
     Dates: start: 20130107
  12. ATIVAN [Concomitant]
     Dosage: 0.5 MG, ONCE(AC DOSE DENSE  CYCLE4, DAY 1)
     Route: 048
  13. DIPHENHYDRAMINE HYDROCHLORIDE [Concomitant]
     Dosage: 50 MG, ONCE PUSH (AC DOSE DENSE CYCLE 1, DAY1)
     Route: 042
     Dates: start: 20130107
  14. DIPHENHYDRAMINE HYDROCHLORIDE [Concomitant]
     Dosage: 50 MG, ONCE PUSH (AC DOSE DENSE CYCLE 4, DAY 1)
     Route: 042
     Dates: start: 20130219
  15. FAMOTIDINE [Concomitant]
     Dosage: 20 MG (OF 10 MG/ML) INTRAVENOUS ONCE PUSH
     Route: 042
     Dates: start: 20130107
  16. FAMOTIDINE [Concomitant]
     Dosage: 20 MG,ONCE PUSH(AC DOSE DENSE CYCLE 4, DAY1)
     Route: 042
     Dates: start: 20130219
  17. CYTOXAN [Concomitant]
     Dosage: 1,044MG (AT 600 MG/M2) INTRAVENOUS ONCE SHORT
     Route: 042
     Dates: start: 20130107
  18. CYTOXAN [Concomitant]
     Dosage: 1,044MG (AT 800 MG/M2) INTRAVENOUS ONCE
     Route: 042
     Dates: start: 20130219
  19. NEULASTA [Concomitant]
     Dosage: 6 MCG (OF 6 MG/0.6ML) ONCE AC DOSE DENSE CYCLE1 DAY 2
     Route: 058
     Dates: start: 20130108
  20. NEULASTA [Concomitant]
     Dosage: 6 MCG (OF 6 MG/0.6ML) ONCE AC DOSE DENSE CYCLE4, DAY2
     Route: 058
     Dates: start: 20130220
  21. HEPARIN SODIUM LOCK SOLUTION FLUSH [Concomitant]
     Dosage: 5 ML, ONCE PUSH
     Route: 042
     Dates: start: 20130219
  22. CYCLOPHOSPHAMIDE [Concomitant]
     Dosage: 600 MG/M2 DAY 1, CYCLES 1-4 DOSE DENSE
     Dates: start: 20130108
  23. CYCLOPHOSPHAMIDE [Concomitant]
     Dosage: 60MG/M2 DAY 1, CYCLES 1-4
     Dates: start: 20130220
  24. NORCO [Concomitant]
     Indication: PAIN
     Dosage: 10/325MG, EVERY 6 HOURS
  25. CELEXA [Concomitant]
     Dosage: 40 MG, 1X/DAY
     Route: 048
  26. PHENTERMINE [Concomitant]
     Dosage: UNK

REACTIONS (21)
  - Neurotoxicity [Recovered/Resolved]
  - Bone marrow failure [Recovered/Resolved]
  - Local swelling [Unknown]
  - Skin exfoliation [Unknown]
  - Pain in extremity [Unknown]
  - Erythema [Unknown]
  - Fatigue [Recovered/Resolved]
  - Nausea [Recovered/Resolved]
  - Vomiting [Recovered/Resolved]
  - Stomatitis [Recovered/Resolved]
  - Diarrhoea [Recovered/Resolved]
  - Alopecia [Recovered/Resolved]
  - Hypersensitivity [Recovered/Resolved]
  - Dyspnoea [Recovered/Resolved]
  - Dizziness postural [Recovered/Resolved]
  - Amenorrhoea [Recovered/Resolved]
  - Pyrexia [Recovered/Resolved]
  - Chills [Recovered/Resolved]
  - Pain [Recovered/Resolved]
  - Headache [Recovered/Resolved]
  - Flushing [Recovered/Resolved]
